FAERS Safety Report 9982049 (Version 1)
Quarter: 2014Q1

REPORT INFORMATION
  Report Type: Report from Study
  Country: US (occurrence: US)
  Receive Date: 20140307
  Receipt Date: 20140307
  Transmission Date: 20141002
  Serious: No
  Sender: FDA-Public Use
  Company Number: US-ABBVIE-13P-163-1179359-00

PATIENT
  Age: 52 Year
  Sex: 0
  Weight: 63.56 kg

DRUGS (3)
  1. HUMIRA [Suspect]
     Indication: RHEUMATOID ARTHRITIS
     Route: 058
     Dates: start: 201212
  2. LEFLUNOMIDE [Concomitant]
     Indication: RHEUMATOID ARTHRITIS
     Route: 048
  3. CELEBREX [Concomitant]
     Indication: PAIN
     Route: 048

REACTIONS (2)
  - Respiratory tract infection [Not Recovered/Not Resolved]
  - Nasal congestion [Not Recovered/Not Resolved]
